FAERS Safety Report 7214965-6 (Version None)
Quarter: 2011Q1

REPORT INFORMATION
  Report Type: 
  Country: None (occurrence: None)
  Receive Date: 20110107
  Receipt Date: 20100719
  Transmission Date: 20110831
  Serious: No
  Sender: FDA-Public Use
  Company Number: A0864730A

PATIENT
  Age: 62 Year
  Sex: Male
  Weight: 76.8 kg

DRUGS (3)
  1. AMIODARONE [Concomitant]
     Dosage: 200MG PER DAY
     Route: 048
  2. LOVAZA [Suspect]
     Dosage: 4G PER DAY
     Route: 048
     Dates: start: 20100622, end: 20100630
  3. COUMADIN [Concomitant]
     Dosage: 3MG PER DAY
     Route: 048

REACTIONS (3)
  - CHEST PAIN [None]
  - GASTROOESOPHAGEAL REFLUX DISEASE [None]
  - DYSPNOEA [None]
